FAERS Safety Report 25089921 (Version 1)
Quarter: 2025Q1

REPORT INFORMATION
  Report Type: Spontaneous
  Country: US (occurrence: US)
  Receive Date: 20250318
  Receipt Date: 20250318
  Transmission Date: 20250408
  Serious: No
  Sender: ABBVIE
  Company Number: US-ABBVIE-6176479

PATIENT
  Sex: Female

DRUGS (2)
  1. SKYRIZI [Suspect]
     Active Substance: RISANKIZUMAB-RZAA
     Indication: Immunomodulatory therapy
     Route: 058
  2. YF-VAX [Suspect]
     Active Substance: YELLOW FEVER VIRUS STRAIN 17D-204 LIVE ANTIGEN
     Indication: Product used for unknown indication
     Route: 065
     Dates: start: 20250128

REACTIONS (1)
  - Contraindication to vaccination [Unknown]

NARRATIVE: CASE EVENT DATE: 20250128
